FAERS Safety Report 6108251-5 (Version None)
Quarter: 2009Q1

REPORT INFORMATION
  Report Type: 
  Country: None (occurrence: None)
  Receive Date: 20090303
  Receipt Date: 20090216
  Transmission Date: 20090719
  Serious: Yes (Life-Threatening, Hospitalization)
  Sender: FDA-Public Use
  Company Number: 2009S1002864

PATIENT
  Age: 15 Year
  Sex: Male

DRUGS (1)
  1. VALPROIC ACID [Suspect]
     Dosage: ORAL
     Route: 048

REACTIONS (5)
  - ATRIAL TACHYCARDIA [None]
  - COMA [None]
  - DRUG TOXICITY [None]
  - HAEMOPERFUSION [None]
  - HYPERNATRAEMIA [None]
